FAERS Safety Report 11521403 (Version 1)
Quarter: 2015Q3

REPORT INFORMATION
  Report Type: Spontaneous
  Country: US (occurrence: US)
  Receive Date: 20150918
  Receipt Date: 20150918
  Transmission Date: 20151125
  Serious: Yes (Other)
  Sender: FDA-Public Use
  Company Number: US-BAYER-2015-424041

PATIENT
  Age: 53 Year
  Sex: Male
  Weight: 104.31 kg

DRUGS (3)
  1. MIRALAX [Suspect]
     Active Substance: POLYETHYLENE GLYCOL 3350
     Dosage: 238 G, ONCE
     Route: 048
     Dates: start: 20150911
  2. PREGABALIN. [Concomitant]
     Active Substance: PREGABALIN
     Route: 055
  3. OXYCONTIN [Concomitant]
     Active Substance: OXYCODONE HYDROCHLORIDE

REACTIONS (2)
  - Haematochezia [Unknown]
  - Prescribed overdose [Unknown]
